FAERS Safety Report 12947712 (Version 2)
Quarter: 2017Q2

REPORT INFORMATION
  Report Type: Report from Study
  Country: CA (occurrence: CA)
  Receive Date: 20161117
  Receipt Date: 20170517
  Transmission Date: 20170830
  Serious: Yes (Other)
  Sender: FDA-Public Use
  Company Number: CA-AMGEN-CANSL2016157817

PATIENT
  Age: 61 Year
  Sex: Female
  Weight: 106.12 kg

DRUGS (13)
  1. PROFERRIN [Concomitant]
     Indication: ANAEMIA
     Dosage: 11 MG, BID
  2. METFORMIN [Concomitant]
     Active Substance: METFORMIN HYDROCHLORIDE
     Indication: DIABETES MELLITUS
     Dosage: 500 MG, BID
  3. MAVIK [Concomitant]
     Active Substance: TRANDOLAPRIL
     Indication: CARDIAC DISORDER
     Dosage: 4 MG, QD
     Dates: start: 2015
  4. APO BISOPROLOL [Concomitant]
     Active Substance: BISOPROLOL FUMARATE
     Indication: HYPERTENSION
     Dosage: 5 MG, QD
  5. INVOKANA [Concomitant]
     Active Substance: CANAGLIFLOZIN
     Indication: DIABETES MELLITUS
     Dosage: UNK, QD
     Dates: start: 201504
  6. CO AMLODIPINE [Concomitant]
     Indication: HYPERTENSION
     Dosage: 2.5 MG, QD
  7. LODALIS [Concomitant]
     Active Substance: COLESEVELAM HYDROCHLORIDE
     Indication: BLOOD CHOLESTEROL ABNORMAL
     Dosage: 625 UNK, QD
     Dates: start: 20151029
  8. PREGABALIN. [Concomitant]
     Active Substance: PREGABALIN
  9. APO TERAZOSIN [Concomitant]
     Indication: HYPERTENSION
     Dosage: 5 MG, QD
  10. REPATHA [Suspect]
     Active Substance: EVOLOCUMAB
     Indication: HYPERCHOLESTEROLAEMIA
     Dosage: 140 MG/ML, Q2WK
     Route: 065
     Dates: start: 20161007, end: 20161130
  11. JANUVIA [Concomitant]
     Active Substance: SITAGLIPTIN PHOSPHATE
     Indication: DIABETES MELLITUS
     Dosage: 100 MG, QD
  12. CELEBREX [Concomitant]
     Active Substance: CELECOXIB
     Indication: ARTHRALGIA
     Dosage: 200 MG, QD
     Dates: start: 2015
  13. HYDROCHLOROTHIAZIDE. [Concomitant]
     Active Substance: HYDROCHLOROTHIAZIDE
     Indication: HYPERTENSION
     Dosage: 2.5 MG, QD

REACTIONS (19)
  - Tendon rupture [Unknown]
  - Gastric disorder [Recovered/Resolved]
  - Feeling abnormal [Unknown]
  - Musculoskeletal disorder [Unknown]
  - Pain [Recovering/Resolving]
  - Fungal infection [Recovered/Resolved]
  - Nausea [Recovering/Resolving]
  - Flatulence [Recovered/Resolved]
  - Pain in extremity [Unknown]
  - Viral upper respiratory tract infection [Recovered/Resolved]
  - Sleep disorder [Unknown]
  - Weight increased [Unknown]
  - Arthropathy [Unknown]
  - Myalgia [Not Recovered/Not Resolved]
  - Muscle spasms [Unknown]
  - Muscular weakness [Unknown]
  - Costochondritis [Unknown]
  - Dysstasia [Unknown]
  - Influenza like illness [Recovered/Resolved]

NARRATIVE: CASE EVENT DATE: 201610
